FAERS Safety Report 9765239 (Version 1)
Quarter: 2013Q4

REPORT INFORMATION
  Report Type: Spontaneous
  Country: US (occurrence: US)
  Receive Date: 20131217
  Receipt Date: 20131217
  Transmission Date: 20140711
  Serious: No
  Sender: FDA-Public Use
  Company Number: US-GLAXOSMITHKLINE-A1044156A

PATIENT
  Age: 68 Year
  Sex: Female

DRUGS (9)
  1. SORIATANE [Suspect]
     Indication: PSORIASIS
     Dosage: 50MG PER DAY
     Route: 048
     Dates: start: 201305
  2. SYNTHROID [Concomitant]
  3. AMLODIPINE [Concomitant]
  4. FIORICET [Concomitant]
  5. VITAMIN E [Concomitant]
  6. MULTI-VITAMIN [Concomitant]
  7. VITAMIN D [Concomitant]
  8. ANTI-CHOLESTEROL MEDICATION [Concomitant]
  9. BENADRYL [Concomitant]

REACTIONS (5)
  - Alopecia [Unknown]
  - Hair texture abnormal [Unknown]
  - Lip dry [Unknown]
  - Skin ulcer [Unknown]
  - Hair colour changes [Unknown]
